FAERS Safety Report 23606251 (Version 1)
Quarter: 2024Q1

REPORT INFORMATION
  Report Type: Spontaneous
  Country: DE (occurrence: DE)
  Receive Date: 20240307
  Receipt Date: 20240307
  Transmission Date: 20240410
  Serious: Yes (Other)
  Sender: FDA-Public Use
  Company Number: DE-DCGMA-24202922

PATIENT
  Age: 67 Year
  Sex: Female
  Weight: 84 kg

DRUGS (4)
  1. OMEPRAZOLE [Suspect]
     Active Substance: OMEPRAZOLE
     Indication: Helicobacter gastritis
     Dosage: 80 MILLIGRAM, QD (40 MG 2X1)
     Route: 048
  2. PYLERA [Suspect]
     Active Substance: BISMUTH SUBCITRATE POTASSIUM\METRONIDAZOLE\TETRACYCLINE HYDROCHLORIDE
     Indication: Helicobacter gastritis
     Dosage: UNK, 4X3
     Route: 048
  3. LERCANIDIPINE [Concomitant]
     Active Substance: LERCANIDIPINE
     Indication: Hypertension
     Dosage: 10 MILLIGRAM, QD
     Route: 048
  4. LISILICH COMP [Concomitant]
     Indication: Hypertension
     Dosage: 10 MILLIGRAM, QD
     Route: 048

REACTIONS (1)
  - Polymyalgia rheumatica [Not Recovered/Not Resolved]

NARRATIVE: CASE EVENT DATE: 20240116
